FAERS Safety Report 8561403-7 (Version None)
Quarter: 2012Q3

REPORT INFORMATION
  Report Type: 
  Country: None (occurrence: None)
  Receive Date: 20120802
  Receipt Date: 20120726
  Transmission Date: 20120928
  Serious: Yes (Death)
  Sender: FDA-Public Use
  Company Number: US-GLAXOSMITHKLINE-A0987205A

PATIENT
  Age: 40 Year
  Sex: Male

DRUGS (5)
  1. UNSPECIFIED MEDICATION [Suspect]
  2. NEURONTIN [Concomitant]
  3. ZOLOFT [Concomitant]
  4. VISTARIL [Concomitant]
  5. WELLBUTRIN SR [Suspect]
     Indication: DEPRESSION
     Dosage: 100MG THREE TIMES PER DAY
     Route: 048
     Dates: start: 20091101

REACTIONS (2)
  - INAPPROPRIATE SCHEDULE OF DRUG ADMINISTRATION [None]
  - OVERDOSE [None]
